FAERS Safety Report 5944257-4 (Version None)
Quarter: 2008Q4

REPORT INFORMATION
  Report Type: 
  Country: None (occurrence: None)
  Receive Date: 20081106
  Receipt Date: 20081029
  Transmission Date: 20090506
  Serious: Yes (Other)
  Sender: FDA-Public Use
  Company Number: US-GILEAD-2008-0018546

PATIENT
  Sex: Male
  Weight: 131.21 kg

DRUGS (3)
  1. HEPSERA [Suspect]
  2. LORTAB [Suspect]
  3. METHADONE HCL [Suspect]

REACTIONS (2)
  - ADVERSE DRUG REACTION [None]
  - DRUG INEFFECTIVE [None]
